FAERS Safety Report 4318723-1 (Version None)
Quarter: 2004Q1

REPORT INFORMATION
  Report Type: 
  Country: None (occurrence: None)
  Receive Date: 20040315
  Receipt Date: 20040309
  Transmission Date: 20041129
  Serious: Yes (Death, Hospitalization, Other)
  Sender: FDA-Public Use
  Company Number: 2004-01-1697

PATIENT
  Age: 51 Year
  Sex: Male
  Weight: 81.6475 kg

DRUGS (3)
  1. PEG-INTRON [Suspect]
     Indication: HEPATITIS C
     Dosage: 80 MCG QW SUBCUTANEOUS
     Route: 058
     Dates: start: 20030101, end: 20031024
  2. REBETOL [Suspect]
     Indication: HEPATITIS C
     Dosage: 800 MG QD ORAL
     Route: 048
     Dates: start: 20030101, end: 20031024
  3. HYDROCODONE BITARTRATE [Concomitant]

REACTIONS (19)
  - ACTIVATED PARTIAL THROMBOPLASTIN TIME PROLONGED [None]
  - BRAIN OEDEMA [None]
  - CELLULITIS [None]
  - CEREBRAL ARTERY THROMBOSIS [None]
  - CEREBRAL HAEMORRHAGE [None]
  - CEREBROVASCULAR ACCIDENT [None]
  - COMA [None]
  - DEPRESSED LEVEL OF CONSCIOUSNESS [None]
  - DYSPHAGIA [None]
  - FACIAL PALSY [None]
  - HALLUCINATION [None]
  - HEMIPLEGIA [None]
  - HYPERCOAGULATION [None]
  - ISCHAEMIC CEREBRAL INFARCTION [None]
  - LABORATORY TEST ABNORMAL [None]
  - PHLEBITIS SUPERFICIAL [None]
  - PROTHROMBIN TIME PROLONGED [None]
  - SKIN DISCOLOURATION [None]
  - SOMNOLENCE [None]
